FAERS Safety Report 4448786-4 (Version None)
Quarter: 2004Q3

REPORT INFORMATION
  Report Type: 
  Country: None (occurrence: None)
  Receive Date: 20040909
  Receipt Date: 20040825
  Transmission Date: 20050211
  Serious: No
  Sender: FDA-Public Use
  Company Number: 03P-163-0235020-00

PATIENT
  Age: 43 Year
  Sex: Female

DRUGS (7)
  1. HUMIRA [Suspect]
     Indication: RHEUMATOID ARTHRITIS
     Dosage: 40 MG, 1 IN 2 WK, SUBCUTANEOUS
     Route: 058
     Dates: start: 20010320, end: 20030916
  2. EQUATE NASAL SPRAY [Concomitant]
  3. ARTHROTEC [Concomitant]
  4. NORMENSAL [Concomitant]
  5. EUGYNON [Concomitant]
  6. PSEUDOEPHEDRINE HYDROCHLORIDE [Concomitant]
  7. HYDROXYCHLOROQUINE PHOSPHATE [Concomitant]

REACTIONS (9)
  - ANTIPHOSPHOLIPID SYNDROME [None]
  - BLOOD IMMUNOGLOBULIN M INCREASED [None]
  - BODY TEMPERATURE INCREASED [None]
  - CARDIOLIPIN ANTIBODY POSITIVE [None]
  - INFARCTION [None]
  - LUPUS-LIKE SYNDROME [None]
  - NAIL DISORDER [None]
  - RASH VESICULAR [None]
  - VASCULITIS [None]
